FAERS Safety Report 4641142-5 (Version None)
Quarter: 2005Q2

REPORT INFORMATION
  Report Type: 
  Country: None (occurrence: None)
  Receive Date: 20050322
  Receipt Date: 20041223
  Transmission Date: 20051028
  Serious: Yes (Other)
  Sender: FDA-Public Use
  Company Number: HQWYE265928DEC04

PATIENT
  Sex: Female

DRUGS (2)
  1. PROTONIX [Suspect]
     Dosage: ORAL
     Route: 048
  2. TAMOXIFEN (TAMOXIFEN, ) [Suspect]

REACTIONS (1)
  - PNEUMONIA [None]
